FAERS Safety Report 9377188 (Version 1)
Quarter: 2013Q3

REPORT INFORMATION
  Report Type: Spontaneous
  Country: US (occurrence: US)
  Receive Date: 20130701
  Receipt Date: 20130701
  Transmission Date: 20140515
  Serious: Yes (Other)
  Sender: FDA-Public Use
  Company Number: US-JNJFOC-20130619097

PATIENT
  Sex: 0

DRUGS (5)
  1. DOXORUBICIN [Suspect]
     Indication: BREAST CANCER
     Dosage: X3
     Route: 042
  2. CYCLOPHOSPHAMIDE [Suspect]
     Indication: BREAST CANCER
     Dosage: X3
     Route: 065
  3. PACLITAXEL [Suspect]
     Indication: BREAST CANCER
     Dosage: X3
     Route: 065
  4. BEVACIZUMAB [Suspect]
     Indication: BREAST CANCER
     Route: 065
  5. BEVACIZUMAB [Suspect]
     Indication: BREAST CANCER
     Route: 065

REACTIONS (3)
  - Hypertension [Unknown]
  - Impaired healing [Unknown]
  - Toxicity to various agents [Unknown]
